FAERS Safety Report 7013837-X (Version None)
Quarter: 2010Q3

REPORT INFORMATION
  Report Type: 
  Country: None (occurrence: None)
  Receive Date: 20100924
  Receipt Date: 20100824
  Transmission Date: 20110219
  Serious: No
  Sender: FDA-Public Use
  Company Number: US-BAYER-201032084NA

PATIENT
  Sex: Female

DRUGS (1)
  1. EOVIST [Suspect]
     Indication: PRODUCT USED FOR UNKNOWN INDICATION
     Dosage: TOTAL DAILY DOSE: 7 ML
     Dates: start: 20100715, end: 20100715

REACTIONS (2)
  - NAUSEA [None]
  - SNEEZING [None]
